FAERS Safety Report 17949587 (Version 1)
Quarter: 2020Q2

REPORT INFORMATION
  Report Type: Spontaneous
  Country: US (occurrence: US)
  Receive Date: 20200626
  Receipt Date: 20200626
  Transmission Date: 20200714
  Serious: No
  Sender: FDA-Public Use
  Company Number: US-TEVA-2020-US-1791998

PATIENT
  Age: 81 Year
  Sex: Female

DRUGS (1)
  1. PROAIR HFA [Suspect]
     Active Substance: ALBUTEROL SULFATE
     Dosage: PROAIR 4 TIMES A DAY
     Route: 065

REACTIONS (4)
  - Bronchitis [Recovered/Resolved]
  - Cough [Unknown]
  - Wheezing [Recovered/Resolved]
  - Nasopharyngitis [Unknown]
